FAERS Safety Report 8310241 (Version 2)
Quarter: 2013Q1

REPORT INFORMATION
  Report Type: Spontaneous
  Country: US (occurrence: US)
  Receive Date: 20111223
  Receipt Date: 20130117
  Transmission Date: 20140127
  Serious: Yes (Other)
  Sender: FDA-Public Use
  Company Number: US-ROCHE-1023968

PATIENT
  Sex: Female

DRUGS (4)
  1. ACCUTANE [Suspect]
     Indication: ACNE
     Route: 048
     Dates: start: 1990, end: 1994
  2. ACCUTANE [Suspect]
     Route: 048
     Dates: start: 2000
  3. CLINDETS [Concomitant]
  4. DOXYCYCLINE [Concomitant]
     Route: 065

REACTIONS (2)
  - Colitis ulcerative [Unknown]
  - Inflammatory bowel disease [Unknown]
